FAERS Safety Report 18644046 (Version 1)
Quarter: 2020Q4

REPORT INFORMATION
  Report Type: Spontaneous
  Country: US (occurrence: US)
  Receive Date: 20201221
  Receipt Date: 20201221
  Transmission Date: 20210114
  Serious: Yes (Other)
  Sender: FDA-Public Use
  Company Number: US-PURDUE-USA-2020-0161778

PATIENT
  Sex: Male

DRUGS (1)
  1. OXYCODONE/ ACETAMINOPHEN TABLETS [Suspect]
     Active Substance: ACETAMINOPHEN\OXYCODONE HYDROCHLORIDE
     Indication: PRODUCT USED FOR UNKNOWN INDICATION
     Dosage: UNK
     Route: 048

REACTIONS (9)
  - Lethargy [Unknown]
  - Drug dependence [Unknown]
  - Neuralgia [Unknown]
  - Nerve injury [Unknown]
  - Fatigue [Unknown]
  - Learning disability [Unknown]
  - Cardiac disorder [Unknown]
  - Mental impairment [Unknown]
  - Hypothyroidism [Unknown]
